FAERS Safety Report 9287944 (Version 1)
Quarter: 2013Q2

REPORT INFORMATION
  Report Type: Spontaneous
  Country: US (occurrence: US)
  Receive Date: 20130514
  Receipt Date: 20130514
  Transmission Date: 20140414
  Serious: Yes (Hospitalization)
  Sender: FDA-Public Use
  Company Number: US-BAYER-2013-058994

PATIENT
  Age: 43 Year
  Sex: Female

DRUGS (7)
  1. YASMIN [Suspect]
  2. VITAMIN C [ASCORBIC ACID] [Concomitant]
  3. PROTONIX [Concomitant]
  4. ZOLPIDEM [Concomitant]
  5. IRON SULFATE [Concomitant]
  6. LEXAPRO [Concomitant]
     Dosage: 5 MG, DAILY
  7. PHENYTOIN [Concomitant]

REACTIONS (2)
  - Pulmonary embolism [None]
  - Cerebrovascular accident [None]
